FAERS Safety Report 14976527 (Version 2)
Quarter: 2018Q3

REPORT INFORMATION
  Report Type: Spontaneous
  Country: JP (occurrence: JP)
  Receive Date: 20180605
  Receipt Date: 20180706
  Transmission Date: 20181010
  Serious: Yes (Other)
  Sender: FDA-Public Use
  Company Number: JP-GILEAD-2018-0335154

PATIENT
  Age: 33 Year
  Sex: Male

DRUGS (4)
  1. PRONON [Concomitant]
     Active Substance: PROPAFENONE
     Indication: WOLFF-PARKINSON-WHITE SYNDROME
     Dosage: 3 DF, TID
     Route: 048
  2. TIVICAY [Suspect]
     Active Substance: DOLUTEGRAVIR SODIUM
     Indication: HIV INFECTION
     Dosage: 50 MG, QD
     Route: 048
     Dates: start: 20171130, end: 20180320
  3. PRONON [Concomitant]
     Active Substance: PROPAFENONE
     Route: 048
  4. DESCOVY [Suspect]
     Active Substance: EMTRICITABINE\TENOFOVIR ALAFENAMIDE FUMARATE
     Indication: HIV INFECTION
     Dosage: 1 DF, QD
     Route: 048
     Dates: start: 20171130, end: 20180320

REACTIONS (4)
  - Hallucination [Recovered/Resolved]
  - Sensory disturbance [Recovered/Resolved]
  - Nausea [Recovered/Resolved]
  - Dizziness [Recovered/Resolved]

NARRATIVE: CASE EVENT DATE: 20180320
